FAERS Safety Report 9250332 (Version 1)
Quarter: 2013Q2

REPORT INFORMATION
  Report Type: Spontaneous
  Country: US (occurrence: None)
  Receive Date: 20130419
  Receipt Date: 20130419
  Transmission Date: 20140414
  Serious: Yes (Other)
  Sender: FDA-Public Use
  Company Number: None

PATIENT
  Age: 66 Year
  Sex: Female
  Weight: 58.97 kg

DRUGS (1)
  1. SIMVASTATIN 10 MG NORTHSTAR RX [Suspect]
     Indication: BLOOD CHOLESTEROL INCREASED
     Dates: start: 20121101, end: 20130424

REACTIONS (6)
  - Pain in extremity [None]
  - Headache [None]
  - Constipation [None]
  - Nausea [None]
  - Gastrooesophageal reflux disease [None]
  - Drug ineffective [None]
